FAERS Safety Report 6860668-7 (Version None)
Quarter: 2010Q3

REPORT INFORMATION
  Report Type: 
  Country: None (occurrence: None)
  Receive Date: 20100720
  Receipt Date: 20100715
  Transmission Date: 20110219
  Serious: No
  Sender: FDA-Public Use
  Company Number: US-TEVA-241657USA

PATIENT
  Sex: Female

DRUGS (2)
  1. SALBUTAMOL SULFATE INHALATION, 0.09 MG [Suspect]
     Route: 055
  2. MOMETASONE FUROATE [Concomitant]
     Dosage: 1 TO 2 PER DAY
     Route: 055

REACTIONS (1)
  - DRUG INEFFECTIVE [None]
